FAERS Safety Report 8361795-8 (Version None)
Quarter: 2012Q2

REPORT INFORMATION
  Report Type: 
  Country: None (occurrence: None)
  Receive Date: 20120515
  Receipt Date: 20120510
  Transmission Date: 20120825
  Serious: Yes (Other)
  Sender: FDA-Public Use
  Company Number: US-GLAXOSMITHKLINE-A0977161A

PATIENT
  Age: 54 Year
  Sex: Female

DRUGS (2)
  1. NO CONCURRENT MEDICATION [Concomitant]
  2. FLOVENT [Suspect]
     Indication: ASTHMA
     Dosage: 1SPR PER DAY
     Route: 055
     Dates: start: 20111201

REACTIONS (2)
  - ASTHMA [None]
  - DRUG ADMINISTRATION ERROR [None]
